FAERS Safety Report 7119070-5 (Version None)
Quarter: 2010Q4

REPORT INFORMATION
  Report Type: 
  Country: None (occurrence: None)
  Receive Date: 20101123
  Receipt Date: 20101112
  Transmission Date: 20110411
  Serious: Yes (Other)
  Sender: FDA-Public Use
  Company Number: B0672429A

PATIENT
  Sex: Female

DRUGS (5)
  1. FLUTIDE DISKUS [Suspect]
     Indication: ASTHMA
     Dosage: 400MCG PER DAY
     Route: 055
     Dates: start: 20091118, end: 20100801
  2. THEOPHYLLINE [Concomitant]
     Dosage: 200MG PER DAY
     Route: 048
  3. ONON [Concomitant]
     Dosage: 225MG PER DAY
     Route: 048
  4. RISPERDAL [Concomitant]
     Dosage: 5MG PER DAY
     Route: 048
  5. CHINESE MEDICINE [Concomitant]
     Route: 048

REACTIONS (2)
  - DEAFNESS [None]
  - EAR DISCOMFORT [None]
